FAERS Safety Report 7316879-X (Version None)
Quarter: 2011Q1

REPORT INFORMATION
  Report Type: 
  Country: None (occurrence: None)
  Receive Date: 20110226
  Receipt Date: 20100830
  Transmission Date: 20110831
  Serious: Yes (Other)
  Sender: FDA-Public Use
  Company Number: US-ALLERGAN-1011170US

PATIENT
  Age: 59 Year
  Sex: Female

DRUGS (2)
  1. BOTOXA? [Suspect]
     Indication: MUSCLE SPASTICITY
  2. BOTOXA? [Suspect]
     Indication: MULTIPLE SCLEROSIS
     Dosage: 300 UNITS, SINGLE
     Route: 030
     Dates: start: 20100818, end: 20100818

REACTIONS (2)
  - INJECTION SITE REACTION [None]
  - MUSCULAR WEAKNESS [None]
